FAERS Safety Report 23191729 (Version 1)
Quarter: 2023Q4

REPORT INFORMATION
  Report Type: Spontaneous
  Country: US (occurrence: None)
  Receive Date: 20231115
  Receipt Date: 20231115
  Transmission Date: 20240109
  Serious: No
  Sender: FDA-Public Use
  Company Number: None

PATIENT
  Age: 63 Year
  Sex: Female
  Weight: 63.9 kg

DRUGS (8)
  1. OZEMPIC [Suspect]
     Active Substance: SEMAGLUTIDE
     Indication: Blood glucose increased
     Dosage: OTHER FREQUENCY : WEEKLY;?
     Route: 058
     Dates: start: 20230728, end: 20231111
  2. LOSARTAN [Concomitant]
     Active Substance: LOSARTAN
  3. ROSUVASTATIN [Concomitant]
     Active Substance: ROSUVASTATIN
  4. PLAVIX [Concomitant]
     Active Substance: CLOPIDOGREL BISULFATE
  5. ASPIRIN [Concomitant]
     Active Substance: ASPIRIN
  6. ESCITALOPRAM [Concomitant]
     Active Substance: ESCITALOPRAM OXALATE
  7. ZETIA [Concomitant]
     Active Substance: EZETIMIBE
  8. VITAMIN D3 [Concomitant]
     Active Substance: CHOLECALCIFEROL

REACTIONS (5)
  - Nausea [None]
  - Decreased appetite [None]
  - Depression [None]
  - Feeling of despair [None]
  - Suicidal ideation [None]

NARRATIVE: CASE EVENT DATE: 20231111
